FAERS Safety Report 21394908 (Version 1)
Quarter: 2022Q3

REPORT INFORMATION
  Report Type: Spontaneous
  Country: ES (occurrence: None)
  Receive Date: 20220930
  Receipt Date: 20220930
  Transmission Date: 20221026
  Serious: Yes (Hospitalization)
  Sender: FDA-Public Use
  Company Number: None

PATIENT
  Age: 79 Year
  Sex: Male

DRUGS (9)
  1. OBINUTUZUMAB [Suspect]
     Active Substance: OBINUTUZUMAB
     Indication: Non-Hodgkin^s lymphoma
     Dosage: 1000.0 MG C/2 MESES
     Route: 065
     Dates: start: 20210125
  2. IBRUTINIB [Suspect]
     Active Substance: IBRUTINIB
     Indication: Non-Hodgkin^s lymphoma
     Dosage: 560.0 MG C/24 H
     Route: 065
     Dates: start: 20210125
  3. ACETAMINOPHEN [Concomitant]
     Active Substance: ACETAMINOPHEN
     Indication: Malaise
     Dosage: 1.0 G DECOCE
     Dates: start: 20191029
  4. NOVORAPID [Concomitant]
     Active Substance: INSULIN ASPART
     Indication: Type 2 diabetes mellitus
     Dosage: 18.0 UI A-DECOCE, 100 U/ML SOLUTION FOR INJECTION IN A PRE-FILLED PEN, 5 PRE-FILLED PENS OF 3 ML
     Dates: start: 20200228
  5. LANTUS SOLOSTAR [Concomitant]
     Active Substance: INSULIN GLARGINE
     Indication: Type 2 diabetes mellitus
     Dosage: 40.0 UI C/24 H, 100 UNITS/ML SOLUTION FOR INJECTION IN PRE-FILLED PEN, 5 PRE-FILLED PENS OF 3 ML
     Dates: start: 20100607
  6. ALLOPURINOL [Concomitant]
     Active Substance: ALLOPURINOL
     Indication: Product used for unknown indication
     Dosage: 100.0 MG DECOCE, PHARMA 100 MG TABLETS EFG , 100 TABLETS
     Dates: start: 20210118
  7. BISOPROLOL [Concomitant]
     Active Substance: BISOPROLOL
     Indication: Cardiac failure chronic
     Dosage: 2.5 MG DE, 2.5 MG TABLETS EFG , 28 TABLETS (PVC/PVDC-ALUMINUM BLISTER)
     Dates: start: 20191030
  8. PANTOPRAZOLE SODIUM [Concomitant]
     Active Substance: PANTOPRAZOLE SODIUM
     Indication: Back pain
     Dosage: 40.0 MG DE, 40 MG GASTRORESISTENT TABLETS EFG, 56 TABLETS (BOTTLE)
     Dates: start: 20210223
  9. ATORVASTATIN [Concomitant]
     Active Substance: ATORVASTATIN
     Indication: Cardiac failure chronic
     Dosage: 10.0 MG CE, 10 MG FILM COATED TABLETS, 28 TABLETS
     Dates: start: 20100325

REACTIONS (1)
  - Diarrhoea [Recovered/Resolved]

NARRATIVE: CASE EVENT DATE: 20210925
